FAERS Safety Report 6184780-3 (Version None)
Quarter: 2009Q2

REPORT INFORMATION
  Report Type: 
  Country: None (occurrence: None)
  Receive Date: 20090508
  Receipt Date: 20090506
  Transmission Date: 20091009
  Serious: Yes (Other)
  Sender: FDA-Public Use
  Company Number: US-ASTRAZENECA-2009UW11534

PATIENT
  Age: 75 Year
  Sex: Female
  Weight: 61.2 kg

DRUGS (2)
  1. CRESTOR [Suspect]
     Dosage: 5 MG ON TUE, THUR AND SAT
     Route: 048
     Dates: start: 20090428
  2. LISINOPRIL [Concomitant]
     Indication: HYPERTENSION
     Route: 048
     Dates: start: 20090427

REACTIONS (2)
  - HYPERTENSION [None]
  - TREMOR [None]
